FAERS Safety Report 23489116 (Version 3)
Quarter: 2024Q2

REPORT INFORMATION
  Report Type: Report from Study
  Country: US (occurrence: US)
  Receive Date: 20240206
  Receipt Date: 20240507
  Transmission Date: 20240716
  Serious: Yes (Hospitalization)
  Sender: FDA-Public Use
  Company Number: US-Stemline Therapeutics, Inc.-2024ST000324

PATIENT
  Age: 76 Year
  Sex: Female

DRUGS (3)
  1. ORSERDU [Suspect]
     Active Substance: ELACESTRANT
     Indication: Product used for unknown indication
     Route: 048
     Dates: start: 20240115
  2. ORSERDU [Suspect]
     Active Substance: ELACESTRANT
     Route: 048
     Dates: start: 20231016, end: 20240104
  3. ORSERDU [Suspect]
     Active Substance: ELACESTRANT
     Route: 048

REACTIONS (5)
  - Diverticulitis [Unknown]
  - Abscess [Unknown]
  - Nausea [Not Recovered/Not Resolved]
  - Abdominal pain [Not Recovered/Not Resolved]
  - Dysarthria [Unknown]

NARRATIVE: CASE EVENT DATE: 20240104
